FAERS Safety Report 11688942 (Version 2)
Quarter: 2015Q4

REPORT INFORMATION
  Report Type: Spontaneous
  Country: US (occurrence: US)
  Receive Date: 20151102
  Receipt Date: 20151120
  Transmission Date: 20160304
  Serious: Yes (Death, Other)
  Sender: FDA-Public Use
  Company Number: US-ROCHE-1651235

PATIENT
  Age: 84 Year
  Sex: Female
  Weight: 49.49 kg

DRUGS (1)
  1. ESBRIET [Suspect]
     Active Substance: PIRFENIDONE
     Indication: PULMONARY HYPERTENSION
     Route: 048
     Dates: start: 20150401

REACTIONS (6)
  - Weight decreased [Unknown]
  - Lung disorder [Fatal]
  - Nausea [Unknown]
  - Diarrhoea [Unknown]
  - Abasia [Unknown]
  - Decreased appetite [Unknown]

NARRATIVE: CASE EVENT DATE: 20151112
